FAERS Safety Report 9580053 (Version 1)
Quarter: 2013Q3

REPORT INFORMATION
  Report Type: Spontaneous
  Country: US (occurrence: None)
  Receive Date: 20130916
  Receipt Date: 20130916
  Transmission Date: 20140515
  Serious: Yes (Hospitalization)
  Sender: FDA-Public Use
  Company Number: JPI-P-027844

PATIENT
  Age: 60 Year
  Sex: Female

DRUGS (4)
  1. XYREM [Suspect]
     Indication: NARCOLEPSY
     Route: 048
     Dates: start: 20070214
  2. ZIPRASIDONE [Concomitant]
  3. CLONAZEPAM [Concomitant]
  4. ASPIRIN [Concomitant]

REACTIONS (3)
  - Depression [None]
  - Condition aggravated [None]
  - Pain [None]
